FAERS Safety Report 6329527-2 (Version None)
Quarter: 2009Q3

REPORT INFORMATION
  Report Type: 
  Country: None (occurrence: None)
  Receive Date: 20090826
  Receipt Date: 20090814
  Transmission Date: 20100115
  Serious: Yes (Other)
  Sender: FDA-Public Use
  Company Number: US-ELI_LILLY_AND_COMPANY-US200908003428

PATIENT
  Sex: Female

DRUGS (1)
  1. SYMBYAX [Suspect]
     Indication: BIPOLAR DISORDER
     Dosage: 1 D/F, DAILY (1/D)
     Dates: start: 20080801

REACTIONS (2)
  - OFF LABEL USE [None]
  - WEIGHT INCREASED [None]
